FAERS Safety Report 5235795-0 (Version None)
Quarter: 2007Q1

REPORT INFORMATION
  Report Type: 
  Country: None (occurrence: None)
  Receive Date: 20070212
  Receipt Date: 20070206
  Transmission Date: 20070707
  Serious: Yes (Death, Hospitalization)
  Sender: FDA-Public Use
  Company Number: FR-MERCK-0701FRA00033

PATIENT
  Age: 92 Year
  Sex: Female
  Weight: 57 kg

DRUGS (9)
  1. NOROXIN [Suspect]
     Indication: URINARY TRACT INFECTION
     Route: 048
     Dates: start: 20061208, end: 20061216
  2. SULPIRIDE [Concomitant]
     Route: 048
     Dates: start: 20060710
  3. MEPROBAMATE [Concomitant]
     Indication: ANXIETY
     Route: 048
     Dates: start: 20060710
  4. HYDROXYUREA [Concomitant]
     Indication: HAEMATOPOIETIC NEOPLASM
     Route: 048
  5. CYAMEMAZINE [Concomitant]
     Route: 048
     Dates: start: 20060710
  6. MEMANTINE HYDROCHLORIDE [Concomitant]
     Indication: PRESENILE DEMENTIA
     Route: 048
     Dates: start: 20060710
  7. CITALOPRAM HYDROBROMIDE [Concomitant]
     Indication: DEPRESSION
     Route: 048
  8. OMEPRAZOLE [Concomitant]
     Route: 048
  9. ACETAMINOPHEN [Concomitant]
     Route: 048

REACTIONS (3)
  - DEATH [None]
  - DIARRHOEA [None]
  - PYREXIA [None]
